FAERS Safety Report 9729700 (Version 2)
Quarter: 2015Q3

REPORT INFORMATION
  Report Type: Spontaneous
  Country: US (occurrence: US)
  Receive Date: 20131204
  Receipt Date: 20150804
  Transmission Date: 20151125
  Serious: No
  Sender: FDA-Public Use
  Company Number: US-GILEAD-2009-0021725

PATIENT
  Age: 69 Year
  Sex: Female
  Weight: 63.5 kg

DRUGS (15)
  1. LASIX [Concomitant]
     Active Substance: FUROSEMIDE
  2. DIGOXIN. [Concomitant]
     Active Substance: DIGOXIN
  3. ACIPHEX [Concomitant]
     Active Substance: RABEPRAZOLE SODIUM
  4. MULTIVITAMIN [Concomitant]
     Active Substance: VITAMINS
  5. LOMOTIL [Concomitant]
     Active Substance: ATROPINE SULFATE\DIPHENOXYLATE HYDROCHLORIDE
  6. LETAIRIS [Suspect]
     Active Substance: AMBRISENTAN
     Indication: PULMONARY ARTERIAL HYPERTENSION
     Route: 048
     Dates: start: 20081212
  7. QUINAPRIL [Concomitant]
     Active Substance: QUINAPRIL\QUINAPRIL HYDROCHLORIDE
  8. WARFARIN [Concomitant]
     Active Substance: WARFARIN
  9. TYLENOL EX-STR [Concomitant]
  10. PROBIOTIC ACIDOPHILUS [Concomitant]
     Active Substance: LACTOBACILLUS ACIDOPHILUS
  11. METOCLOPRAMIDE. [Concomitant]
     Active Substance: METOCLOPRAMIDE
  12. SPIRONOLACTONE. [Concomitant]
     Active Substance: SPIRONOLACTONE
  13. METOPROLOL [Concomitant]
     Active Substance: METOPROLOL
  14. REVATIO [Concomitant]
     Active Substance: SILDENAFIL CITRATE
  15. IMODIUM [Concomitant]
     Active Substance: LOPERAMIDE HYDROCHLORIDE

REACTIONS (1)
  - Sinus disorder [Unknown]
